FAERS Safety Report 5688852-9 (Version None)
Quarter: 2008Q1

REPORT INFORMATION
  Report Type: 
  Country: None (occurrence: None)
  Receive Date: 20080331
  Receipt Date: 20050124
  Transmission Date: 20080703
  Serious: Yes (Death, Other)
  Sender: FDA-Public Use
  Company Number: FR-ROCHE-393240

PATIENT
  Age: 37 Year
  Sex: Female

DRUGS (3)
  1. VALIUM [Suspect]
     Dosage: DOSE REPORTED AS 10.
     Route: 048
     Dates: end: 20040514
  2. STILNOX [Suspect]
     Indication: SLEEP DISORDER
     Route: 048
     Dates: end: 20040514
  3. XANAX [Suspect]
     Route: 048
     Dates: end: 20040514

REACTIONS (2)
  - DEATH [None]
  - OVERDOSE [None]
